FAERS Safety Report 6516957-9 (Version None)
Quarter: 2009Q4

REPORT INFORMATION
  Report Type: 
  Country: None (occurrence: None)
  Receive Date: 20091223
  Receipt Date: 20091217
  Transmission Date: 20100525
  Serious: Yes (Other)
  Sender: FDA-Public Use
  Company Number: US-ALLERGAN-0917421US

PATIENT
  Age: 61 Year
  Sex: Female

DRUGS (3)
  1. BOTOX COSMETIC [Suspect]
     Indication: SKIN WRINKLING
     Dosage: UNK
     Route: 030
     Dates: start: 20091204, end: 20091204
  2. JUVEDERM [Suspect]
     Indication: SKIN WRINKLING
  3. ADVIL [Concomitant]
     Indication: INFLAMMATION

REACTIONS (3)
  - EYE SWELLING [None]
  - INFECTION [None]
  - RASH [None]
